FAERS Safety Report 20949495 (Version 1)
Quarter: 2022Q2

REPORT INFORMATION
  Report Type: Spontaneous
  Country: LB (occurrence: LB)
  Receive Date: 20220613
  Receipt Date: 20220613
  Transmission Date: 20220721
  Serious: Yes (Death, Other)
  Sender: FDA-Public Use
  Company Number: LB-BRISTOL-MYERS SQUIBB COMPANY-2022-055584

PATIENT
  Sex: Male

DRUGS (1)
  1. OPDIVO [Suspect]
     Active Substance: NIVOLUMAB
     Indication: Metastatic malignant melanoma
     Dosage: EVERY 2 WEEKS
     Route: 042
     Dates: start: 20211101, end: 20220601

REACTIONS (1)
  - Death [Fatal]

NARRATIVE: CASE EVENT DATE: 20220601
